FAERS Safety Report 4916655-9 (Version None)
Quarter: 2006Q1

REPORT INFORMATION
  Report Type: 
  Country: None (occurrence: None)
  Receive Date: 20060220
  Receipt Date: 20060125
  Transmission Date: 20060701
  Serious: Yes (Other)
  Sender: FDA-Public Use
  Company Number: 2006AP00507

PATIENT
  Age: 31 Year
  Sex: Female
  Weight: 41 kg

DRUGS (8)
  1. DIPRIVAN [Suspect]
     Indication: GENERAL ANAESTHESIA
     Route: 042
  2. MIDAZOLAM [Concomitant]
     Indication: INDUCTION OF ANAESTHESIA
     Route: 042
  3. FENTANYL CITRATE [Concomitant]
     Indication: INDUCTION OF ANAESTHESIA
     Route: 042
  4. FENTANYL CITRATE [Concomitant]
     Indication: MAINTENANCE OF ANAESTHESIA
     Route: 042
  5. FENTANYL CITRATE [Concomitant]
     Route: 042
  6. FENTANYL CITRATE [Concomitant]
     Route: 042
  7. VECURONIUM BROMIDE [Concomitant]
     Indication: HYPOTONIA
     Route: 042
  8. VECURONIUM BROMIDE [Concomitant]
     Route: 042

REACTIONS (2)
  - BLOOD PRESSURE DECREASED [None]
  - PULMONARY ARTERIAL PRESSURE INCREASED [None]
